FAERS Safety Report 15533642 (Version 4)
Quarter: 2024Q1

REPORT INFORMATION
  Report Type: Spontaneous
  Country: CZ (occurrence: CZ)
  Receive Date: 20181019
  Receipt Date: 20240213
  Transmission Date: 20240410
  Serious: Yes (Life-Threatening, Other)
  Sender: FDA-Public Use
  Company Number: CZ-PFIZER INC-2018213958

PATIENT
  Age: 62 Year
  Sex: Male

DRUGS (20)
  1. IRINOTECAN [Suspect]
     Active Substance: IRINOTECAN
     Indication: Colorectal cancer metastatic
     Dosage: UNK 7 CYCLES
     Route: 065
     Dates: start: 201504, end: 201504
  2. IRINOTECAN [Suspect]
     Active Substance: IRINOTECAN
     Indication: Colon cancer
     Dosage: UNK
     Route: 065
     Dates: start: 201107, end: 201110
  3. FLUOROURACIL [Suspect]
     Active Substance: FLUOROURACIL
     Indication: Colorectal cancer metastatic
     Dosage: 1 CYCLICAL
     Route: 065
     Dates: start: 201504
  4. FLUOROURACIL [Suspect]
     Active Substance: FLUOROURACIL
     Indication: Colon cancer
     Dosage: TOTAL 12 CYCLES- FOLFOX4, 7CYCLES
     Route: 065
     Dates: start: 20100120, end: 20100620
  5. FLUOROURACIL [Suspect]
     Active Substance: FLUOROURACIL
     Dosage: UNK UNK, CYCLE
     Route: 065
     Dates: start: 201006, end: 201006
  6. FLUOROURACIL [Suspect]
     Active Substance: FLUOROURACIL
     Dosage: UNK UNK, CYCLE
     Route: 065
     Dates: start: 20100620, end: 20100620
  7. FLUOROURACIL [Suspect]
     Active Substance: FLUOROURACIL
     Dosage: UNK
     Route: 065
     Dates: start: 201107, end: 201110
  8. LEUCOVORIN [Suspect]
     Active Substance: LEUCOVORIN\LEUCOVORIN CALCIUM
     Indication: Colorectal cancer metastatic
     Dosage: UNK, CYCLIC
     Route: 065
     Dates: start: 201504
  9. LEUCOVORIN [Suspect]
     Active Substance: LEUCOVORIN\LEUCOVORIN CALCIUM
     Indication: Colon cancer
     Dosage: 1 CYCLICAL (UNK, QCY)
     Route: 065
     Dates: start: 20100120, end: 201006
  10. LEUCOVORIN [Suspect]
     Active Substance: LEUCOVORIN\LEUCOVORIN CALCIUM
     Dosage: UNK, CYCLE
     Route: 065
     Dates: start: 20100120, end: 20100120
  11. LEUCOVORIN [Suspect]
     Active Substance: LEUCOVORIN\LEUCOVORIN CALCIUM
     Dosage: UNK, CYCLE
     Route: 065
     Dates: start: 201006, end: 201006
  12. OXALIPLATIN [Suspect]
     Active Substance: OXALIPLATIN
     Indication: Colorectal cancer metastatic
     Dosage: TOTAL OF 12 CYCLES
     Route: 065
     Dates: start: 20100120
  13. OXALIPLATIN [Suspect]
     Active Substance: OXALIPLATIN
     Dosage: UNK, CYCLE
     Route: 065
     Dates: start: 201006
  14. BEVACIZUMAB [Suspect]
     Active Substance: BEVACIZUMAB
     Indication: Colorectal cancer metastatic
     Dosage: 7 CYCLE
     Route: 065
     Dates: start: 201504, end: 201504
  15. BEVACIZUMAB [Suspect]
     Active Substance: BEVACIZUMAB
     Dosage: UNK, CYCLE, QCY
     Route: 065
     Dates: start: 201508, end: 201508
  16. AFLIBERCEPT [Suspect]
     Active Substance: AFLIBERCEPT
     Indication: Colon cancer
     Dosage: UNK
     Route: 065
  17. PALONOSETRON [Suspect]
     Active Substance: PALONOSETRON
     Indication: Product used for unknown indication
     Dosage: UNK
     Route: 065
     Dates: start: 20151103
  18. CALCIUM [Suspect]
     Active Substance: CALCIUM
     Indication: Adenocarcinoma of colon
     Dosage: UNK CYCLICAL
     Route: 065
     Dates: start: 201504
  19. CALCIUM [Suspect]
     Active Substance: CALCIUM
     Indication: Colorectal cancer metastatic
     Dosage: UNK
     Route: 065
     Dates: start: 201107, end: 201110
  20. DEXAMETHASONE [Concomitant]
     Active Substance: DEXAMETHASONE
     Indication: Premedication
     Dosage: UNK
     Route: 065

REACTIONS (13)
  - Cardio-respiratory arrest [Unknown]
  - Gastrointestinal disorder [Unknown]
  - Circulatory collapse [Recovered/Resolved]
  - Colon cancer [Unknown]
  - Malignant neoplasm progression [Unknown]
  - Tumour haemorrhage [Recovered/Resolved]
  - Fall [Unknown]
  - Fracture [Unknown]
  - Loss of consciousness [Unknown]
  - Peripheral sensory neuropathy [Unknown]
  - Craniofacial fracture [Unknown]
  - Drug intolerance [Unknown]
  - Product use in unapproved indication [Unknown]

NARRATIVE: CASE EVENT DATE: 20100101
